FAERS Safety Report 15158443 (Version 1)
Quarter: 2018Q3

REPORT INFORMATION
  Report Type: Spontaneous
  Country: US (occurrence: US)
  Receive Date: 20180620
  Receipt Date: 20180620
  Transmission Date: 20181010
  Serious: Yes (Hospitalization)
  Sender: FDA-Public Use
  Company Number: None

PATIENT
  Age: 62 Year
  Sex: Male

DRUGS (1)
  1. SAIZENPREP [Suspect]
     Active Substance: SOMATROPIN
     Dates: start: 20181026, end: 20180620

REACTIONS (5)
  - Device battery issue [None]
  - Syringe issue [None]
  - Drug dose omission [None]
  - Needle issue [None]
  - Pain in extremity [None]

NARRATIVE: CASE EVENT DATE: 20180607
